FAERS Safety Report 5989183-X (Version None)
Quarter: 2008Q4

REPORT INFORMATION
  Report Type: 
  Country: None (occurrence: None)
  Receive Date: 20081210
  Receipt Date: 20081205
  Transmission Date: 20090506
  Serious: No
  Sender: FDA-Public Use
  Company Number: IT-MERCK-0812ITA00008

PATIENT
  Age: 53 Year
  Sex: Male

DRUGS (3)
  1. VYTORIN [Suspect]
     Route: 048
     Dates: end: 20080101
  2. OMEGA-3 MARINE TRIGLYCERIDES [Concomitant]
     Route: 065
  3. [THERAPY UNSPECIFIED] [Concomitant]
     Route: 065

REACTIONS (1)
  - PAIN [None]
